FAERS Safety Report 18328494 (Version 1)
Quarter: 2020Q3

REPORT INFORMATION
  Report Type: Report from Study
  Country: None (occurrence: US)
  Receive Date: 20200930
  Receipt Date: 20200930
  Transmission Date: 20201103
  Serious: Yes (Other)
  Sender: FDA-Public Use
  Company Number: US-INSMED, INC.-US-INS-19-02199

PATIENT
  Age: 73 Year
  Sex: Female

DRUGS (3)
  1. AZITHROMYCIN ANHYDROUS. [Concomitant]
     Active Substance: AZITHROMYCIN ANHYDROUS
     Indication: PRODUCT USED FOR UNKNOWN INDICATION
  2. ARIKAYCE [Suspect]
     Active Substance: AMIKACIN
     Indication: MYCOBACTERIUM AVIUM COMPLEX INFECTION
     Route: 055
     Dates: start: 201905, end: 2020
  3. ETHAMBUTOL [Concomitant]
     Active Substance: ETHAMBUTOL HYDROCHLORIDE
     Indication: PRODUCT USED FOR UNKNOWN INDICATION

REACTIONS (8)
  - Oropharyngeal pain [Not Recovered/Not Resolved]
  - Dysphonia [Recovered/Resolved]
  - Hypoacusis [Not Recovered/Not Resolved]
  - Stomatitis [Recovered/Resolved]
  - Dysphonia [Not Recovered/Not Resolved]
  - Deafness [Unknown]
  - Bronchospasm [Unknown]
  - Stomatitis [Unknown]

NARRATIVE: CASE EVENT DATE: 201905
